FAERS Safety Report 19385210 (Version 2)
Quarter: 2021Q4

REPORT INFORMATION
  Report Type: Report from Study
  Country: US (occurrence: US)
  Receive Date: 20210608
  Receipt Date: 20211103
  Transmission Date: 20220303
  Serious: Yes (Other)
  Sender: FDA-Public Use
  Company Number: US-ABBVIE-21K-163-3937482-00

PATIENT
  Sex: Male
  Weight: 102.15 kg

DRUGS (1)
  1. HUMIRA [Suspect]
     Active Substance: ADALIMUMAB
     Indication: Rheumatoid arthritis
     Route: 058
     Dates: start: 2013

REACTIONS (6)
  - Synovial cyst [Unknown]
  - Bursa disorder [Unknown]
  - Joint range of motion decreased [Recovered/Resolved]
  - Arthritis [Unknown]
  - Tendon discomfort [Not Recovered/Not Resolved]
  - Arthralgia [Not Recovered/Not Resolved]

NARRATIVE: CASE EVENT DATE: 20160101
